FAERS Safety Report 8847773 (Version 1)
Quarter: 2012Q4

REPORT INFORMATION
  Report Type: 
  Country: NL (occurrence: NL)
  Receive Date: 20121018
  Receipt Date: 20121018
  Transmission Date: 20130627
  Serious: Yes (Hospitalization)
  Sender: FDA-Public Use
  Company Number: NL-PFIZER INC-2012256273

PATIENT
  Age: 71 Year
  Sex: Male
  Weight: 83 kg

DRUGS (15)
  1. GENOTROPIN [Suspect]
     Indication: HYPOPITUITARISM
     Dosage: 0.2 mg, 7/wk
     Route: 058
     Dates: start: 20070920
  2. CORTISONE ACETATE [Concomitant]
     Indication: BLOOD CORTICOTROPHIN DECREASED
     Dosage: UNK
     Dates: start: 20070920
  3. LEVOTHYROXINE [Concomitant]
     Indication: BLOOD THYROID STIMULATING HORMONE DECREASED
     Dosage: UNK
     Dates: start: 20070920
  4. ARCOXIA [Concomitant]
     Indication: OSTEOARTHRITIS
     Dosage: UNK
     Dates: start: 20070920
  5. CAD BRUISGRANULAAT 500/440 [Concomitant]
     Indication: CALCIUM DEFICIENCY
     Dosage: UNK
     Dates: start: 20070920
  6. DUROGESIC PLEISTERS [Concomitant]
     Indication: PAIN
     Dosage: UNK
     Dates: start: 20070920
  7. FOSAMAX [Concomitant]
     Indication: OSTEOPOROSIS
     Dosage: UNK
     Dates: start: 20070920
  8. ANDROGEL [Concomitant]
     Indication: BLOOD LUTEINISING HORMONE DECREASED
     Dosage: UNK
     Dates: start: 20070920
  9. ANDROGEL [Concomitant]
     Indication: BLOOD FOLLICLE STIMULATING HORMONE DECREASED
  10. LYRICA [Concomitant]
     Indication: EPILEPSY
     Dosage: UNK
     Dates: start: 20070920
  11. DEPAKINE [Concomitant]
     Indication: EPILEPSY
     Dosage: UNK
     Dates: start: 20080925
  12. BISOPROLOL [Concomitant]
     Indication: HYPERTENSION
     Dosage: UNK
     Dates: start: 20080925
  13. KINZALMONO [Concomitant]
     Indication: HYPERTENSION
     Dosage: UNK
     Dates: start: 20091001
  14. FLORINEF [Concomitant]
     Dosage: UNK
     Dates: start: 20100101
  15. SLOW-K [Concomitant]
     Dosage: UNK
     Dates: start: 20100125

REACTIONS (1)
  - Arthropathy [Unknown]
